FAERS Safety Report 8084454-8 (Version None)
Quarter: 2012Q1

REPORT INFORMATION
  Report Type: 
  Country: None (occurrence: None)
  Receive Date: 20120128
  Receipt Date: 20110322
  Transmission Date: 20120608
  Serious: No
  Sender: FDA-Public Use
  Company Number: US-ABBOTT-11P-163-0713980-00

PATIENT
  Sex: Female
  Weight: 61.29 kg

DRUGS (4)
  1. DIAZEPAM [Concomitant]
     Indication: PAIN
  2. HUMIRA [Suspect]
     Indication: PSORIASIS
     Dates: start: 20100301
  3. HUMIRA [Suspect]
     Indication: PSORIATIC ARTHROPATHY
  4. IBUPROFEN (ADVIL) [Concomitant]
     Indication: PRODUCT USED FOR UNKNOWN INDICATION

REACTIONS (3)
  - WEIGHT INCREASED [None]
  - INFLUENZA LIKE ILLNESS [None]
  - FATIGUE [None]
